FAERS Safety Report 9341740 (Version 1)
Quarter: 2013Q2

REPORT INFORMATION
  Report Type: Spontaneous
  Country: US (occurrence: None)
  Receive Date: 20130606
  Receipt Date: 20130606
  Transmission Date: 20140414
  Serious: Yes (Life-Threatening, Other)
  Sender: FDA-Public Use
  Company Number: 54973 RAE052213EF003

PATIENT
  Age: 6 Month
  Sex: Female

DRUGS (1)
  1. HYLAND^S TEETHING TABLETS [Suspect]
     Indication: TEETHING

REACTIONS (2)
  - Convulsion [None]
  - Grand mal convulsion [None]
